FAERS Safety Report 4757223-1 (Version None)
Quarter: 2005Q3

REPORT INFORMATION
  Report Type: 
  Country: None (occurrence: None)
  Receive Date: 20050829
  Receipt Date: 20050810
  Transmission Date: 20060218
  Serious: Yes (Disabling)
  Sender: FDA-Public Use
  Company Number: 384576

PATIENT
  Age: 22 Year
  Sex: Male
  Weight: 76.2 kg

DRUGS (1)
  1. ACCUTANE [Suspect]
     Indication: ACNE
     Dosage: ORAL
     Route: 048
     Dates: start: 19880615

REACTIONS (49)
  - ABDOMINAL DISTENSION [None]
  - ABDOMINAL PAIN [None]
  - AGITATION [None]
  - ANAL FISSURE [None]
  - ANGER [None]
  - ANOREXIA [None]
  - ANXIETY [None]
  - BIPOLAR DISORDER [None]
  - CATARACT [None]
  - CHANGE OF BOWEL HABIT [None]
  - CHEST PAIN [None]
  - CHRONIC FATIGUE SYNDROME [None]
  - COLITIS [None]
  - CROHN'S DISEASE [None]
  - DEFAECATION URGENCY [None]
  - DEPRESSION [None]
  - DIARRHOEA [None]
  - DRUG ABUSER [None]
  - DRUG DEPENDENCE [None]
  - DRUG INEFFECTIVE [None]
  - DYSPEPSIA [None]
  - DYSPNOEA [None]
  - FREQUENT BOWEL MOVEMENTS [None]
  - GASTROINTESTINAL DISORDER [None]
  - GASTROINTESTINAL OEDEMA [None]
  - GASTROOESOPHAGEAL REFLUX DISEASE [None]
  - HAEMATOCHEZIA [None]
  - HIATUS HERNIA [None]
  - INFLAMMATORY BOWEL DISEASE [None]
  - INSOMNIA [None]
  - INTESTINAL HAEMORRHAGE [None]
  - IRRITABLE BOWEL SYNDROME [None]
  - MALAISE [None]
  - MIDDLE INSOMNIA [None]
  - MOOD SWINGS [None]
  - MUCOUS MEMBRANE DISORDER [None]
  - NIGHT SWEATS [None]
  - PAIN IN EXTREMITY [None]
  - PARANASAL SINUS DISCOMFORT [None]
  - POLYARTHRITIS [None]
  - POLYP [None]
  - PROCTALGIA [None]
  - RECTAL HAEMORRHAGE [None]
  - SELF INJURIOUS BEHAVIOUR [None]
  - SMOKER [None]
  - STRESS [None]
  - SUICIDAL IDEATION [None]
  - VOMITING [None]
  - WEIGHT DECREASED [None]
